FAERS Safety Report 6612128-6 (Version None)
Quarter: 2010Q1

REPORT INFORMATION
  Report Type: 
  Country: None (occurrence: None)
  Receive Date: 20100302
  Receipt Date: 20100302
  Transmission Date: 20100710
  Serious: Yes (Other)
  Sender: FDA-Public Use
  Company Number: None

PATIENT
  Age: 54 Year
  Sex: Female
  Weight: 74.3899 kg

DRUGS (2)
  1. CYMBALTA [Suspect]
     Indication: DEPRESSION
     Dosage: 1 PER DAY PO
     Route: 048
     Dates: start: 20090110, end: 20091112
  2. CYMBALTA [Suspect]
     Indication: PROCEDURAL PAIN
     Dosage: 1 PER DAY PO
     Route: 048
     Dates: start: 20090110, end: 20091112

REACTIONS (6)
  - ANXIETY [None]
  - APPARENT DEATH [None]
  - BLOOD PRESSURE INCREASED [None]
  - HYPERVENTILATION [None]
  - MEMORY IMPAIRMENT [None]
  - WITHDRAWAL SYNDROME [None]
